FAERS Safety Report 8818606 (Version 1)
Quarter: 2012Q4

REPORT INFORMATION
  Report Type: Report from Study
  Country: US (occurrence: US)
  Receive Date: 20121001
  Receipt Date: 20121001
  Transmission Date: 20130627
  Serious: Yes (Other)
  Sender: FDA-Public Use
  Company Number: US-PFIZER INC-2011306898

PATIENT
  Age: 59 Year
  Sex: Female
  Weight: 90.7 kg

DRUGS (6)
  1. CHANTIX [Suspect]
     Indication: SMOKING CESSATION THERAPY
     Dosage: 0.5 mg, 1x/day
     Route: 048
     Dates: start: 2011, end: 2011
  2. CHANTIX [Suspect]
     Dosage: UNK
     Dates: start: 2011
  3. CHANTIX [Suspect]
     Dosage: UNK
     Route: 048
  4. CYMBALTA [Concomitant]
     Dosage: UNK
  5. AMITRIPTYLINE [Concomitant]
     Indication: SLEEP DISORDER
     Dosage: 25 mg, UNK
  6. KLONOPIN [Concomitant]
     Indication: SLEEP DISORDER
     Dosage: 2 mg, UNK

REACTIONS (4)
  - Blood glucose increased [Unknown]
  - Laboratory test abnormal [Unknown]
  - Drug ineffective [Unknown]
  - Blood cholesterol increased [Unknown]
